FAERS Safety Report 8098298 (Version 3)
Quarter: 2013Q4

REPORT INFORMATION
  Report Type: Spontaneous
  Country: US (occurrence: US)
  Receive Date: 20110819
  Receipt Date: 20131118
  Transmission Date: 20140711
  Serious: Yes (Death, Hospitalization)
  Sender: FDA-Public Use
  Company Number: US-GLAXOSMITHKLINE-A0915670A

PATIENT
  Age: 54 Year
  Sex: Female
  Weight: 99.1 kg

DRUGS (1)
  1. AVANDIA [Suspect]
     Indication: DIABETES MELLITUS
     Dosage: 8MG PER DAY
     Route: 048
     Dates: start: 200011, end: 2004

REACTIONS (11)
  - Cardio-respiratory arrest [Fatal]
  - Myocardial ischaemia [Unknown]
  - Angina unstable [Unknown]
  - Nephropathy [Unknown]
  - Depression [Unknown]
  - Cardiac failure congestive [Unknown]
  - Oedema [Unknown]
  - Cardiac assistance device user [Unknown]
  - Pleural effusion [Unknown]
  - Bundle branch block [Unknown]
  - Acute myocardial infarction [Unknown]
